FAERS Safety Report 5529622-1 (Version None)
Quarter: 2007Q4

REPORT INFORMATION
  Report Type: 
  Country: None (occurrence: None)
  Receive Date: 20071129
  Receipt Date: 20071120
  Transmission Date: 20080405
  Serious: Yes (Hospitalization, Other)
  Sender: FDA-Public Use
  Company Number: JP-PFIZER INC-2007096061

PATIENT
  Sex: Female
  Weight: 40 kg

DRUGS (6)
  1. ZOLOFT [Suspect]
     Indication: DEPRESSION
     Route: 048
     Dates: start: 20070727, end: 20070901
  2. ROHYPNOL [Suspect]
     Indication: INSOMNIA
     Route: 048
  3. VEGETAMIN B [Suspect]
     Indication: INSOMNIA
     Route: 048
  4. DOGMATYL [Suspect]
     Dosage: DAILY DOSE:150MG
     Route: 048
     Dates: start: 20070417, end: 20070901
  5. ROSUVASTATIN CALCIUM [Concomitant]
     Route: 048
     Dates: start: 20070417, end: 20070926
  6. GLYSENNID [Concomitant]
     Route: 048
     Dates: start: 20060413, end: 20070926

REACTIONS (4)
  - BLOOD CREATINE PHOSPHOKINASE INCREASED [None]
  - INTENTIONAL DRUG MISUSE [None]
  - MYALGIA [None]
  - NEUROLEPTIC MALIGNANT SYNDROME [None]
